FAERS Safety Report 13872867 (Version 1)
Quarter: 2017Q3

REPORT INFORMATION
  Report Type: Spontaneous
  Country: US (occurrence: US)
  Receive Date: 20170816
  Receipt Date: 20170816
  Transmission Date: 20171127
  Serious: No
  Sender: FDA-Public Use
  Company Number: US-TARO-2016TAR00633

PATIENT
  Sex: Male

DRUGS (1)
  1. TERBINAFINE HCL CREAM 1% (JOCK ITCH) [Suspect]
     Active Substance: TERBINAFINE HYDROCHLORIDE
     Dosage: UNK, 3X/DAY
     Dates: start: 20160713

REACTIONS (2)
  - Inappropriate schedule of drug administration [Not Recovered/Not Resolved]
  - Drug effect incomplete [Not Recovered/Not Resolved]

NARRATIVE: CASE EVENT DATE: 20160713
